FAERS Safety Report 7912398-8 (Version None)
Quarter: 2011Q4

REPORT INFORMATION
  Report Type: 
  Country: None (occurrence: None)
  Receive Date: 20111114
  Receipt Date: 20111103
  Transmission Date: 20120403
  Serious: Yes (Other)
  Sender: FDA-Public Use
  Company Number: DE-TEVA-307886GER

PATIENT
  Age: 72 Year
  Sex: Female

DRUGS (6)
  1. SIMVASTATIN [Concomitant]
  2. HYDROCHLOROTHIAZIDE [Concomitant]
  3. METOPROLOL SUCCINATE [Concomitant]
  4. CLINDAMYCIN [Suspect]
     Dosage: 1800 MILLIGRAM;
     Route: 048
  5. NIFEDIPINE [Concomitant]
  6. LEVOTHYROXINE SODIUM [Concomitant]

REACTIONS (4)
  - HYPERHIDROSIS [None]
  - DIARRHOEA [None]
  - CARDIAC DISCOMFORT [None]
  - DIZZINESS [None]
